FAERS Safety Report 23322970 (Version 1)
Quarter: 2023Q4

REPORT INFORMATION
  Report Type: Report from Study
  Country: DE (occurrence: DE)
  Receive Date: 20231220
  Receipt Date: 20231220
  Transmission Date: 20240110
  Serious: Yes (Death, Hospitalization, Other)
  Sender: FDA-Public Use
  Company Number: DE-BAXTER-2023BAX036840

PATIENT
  Age: 69 Year

DRUGS (7)
  1. OLIMEL [Suspect]
     Active Substance: AMINO ACIDS\DEXTROSE\SOYBEAN OIL
     Indication: Parenteral nutrition
     Dosage: 1000 ML ONCE DAILY (ROUTE OF ADMINISTRATION - PARENTERAL)
     Route: 050
     Dates: start: 20230804, end: 20231211
  2. OLIMEL [Suspect]
     Active Substance: AMINO ACIDS\DEXTROSE\SOYBEAN OIL
     Indication: Myeloid leukaemia
  3. CERNEVIT [Suspect]
     Active Substance: VITAMINS
     Indication: Parenteral nutrition
     Dosage: 750 MG ONCE DAILY (ROUTE OF ADMINISTRATION - PARENTERAL)
     Route: 050
     Dates: start: 20230804, end: 20231211
  4. CERNEVIT [Suspect]
     Active Substance: VITAMINS
     Indication: Myeloid leukaemia
  5. ELECTROLYTES NOS\MINERALS [Suspect]
     Active Substance: ELECTROLYTES NOS\MINERALS
     Indication: Parenteral nutrition
     Dosage: 10 ML ONCE DAILY (ROUTE OF ADMINISTRATION - PARENTERAL)
     Route: 050
     Dates: start: 20230804, end: 20231211
  6. ELECTROLYTES NOS\MINERALS [Suspect]
     Active Substance: ELECTROLYTES NOS\MINERALS
     Indication: Myeloid leukaemia
  7. UNSPECIFIED INGREDIENT [Suspect]
     Active Substance: UNSPECIFIED INGREDIENT
     Route: 065

REACTIONS (2)
  - Gastrointestinal haemorrhage [Fatal]
  - Gastrointestinal disorder [Recovered/Resolved]

NARRATIVE: CASE EVENT DATE: 20231120
